FAERS Safety Report 5755504-6 (Version None)
Quarter: 2008Q2

REPORT INFORMATION
  Report Type: 
  Country: None (occurrence: None)
  Receive Date: 20080602
  Receipt Date: 20080527
  Transmission Date: 20081010
  Serious: Yes (Other)
  Sender: FDA-Public Use
  Company Number: US-PURDUE-USA_2008_0033064

PATIENT
  Sex: Male

DRUGS (1)
  1. OXYCONTIN [Suspect]
     Indication: DRUG USE FOR UNKNOWN INDICATION
     Dates: start: 20000101

REACTIONS (11)
  - ANHEDONIA [None]
  - ANXIETY [None]
  - ATTENTION DEFICIT/HYPERACTIVITY DISORDER [None]
  - COGNITIVE DISORDER [None]
  - DEPRESSION [None]
  - DRUG DEPENDENCE [None]
  - GENERAL PHYSICAL HEALTH DETERIORATION [None]
  - PAIN [None]
  - PARTNER STRESS [None]
  - PERSONALITY CHANGE [None]
  - VERTIGO [None]
